FAERS Safety Report 8807850 (Version 1)
Quarter: 2012Q4

REPORT INFORMATION
  Report Type: 
  Country: GB (occurrence: GB)
  Receive Date: 20120925
  Receipt Date: 20120925
  Transmission Date: 20130627
  Serious: Yes (Other)
  Sender: FDA-Public Use
  Company Number: GB-GLAXOSMITHKLINE-B0830681A

PATIENT
  Sex: Female
  Weight: 50 kg

DRUGS (5)
  1. SERETIDE [Suspect]
     Indication: PRODUCT USED FOR UNKNOWN INDICATION
     Dosage: 4IUAX Per day
     Route: 065
     Dates: start: 20111116
  2. SINGULAIR [Suspect]
     Indication: ASTHMA
     Dosage: 5MG Per day
     Route: 048
     Dates: start: 20111216, end: 20120809
  3. PROMETHAZINE HYDROCHLORIDE [Concomitant]
     Indication: PRURITUS
     Dates: start: 20010319
  4. ELIXIR [Concomitant]
  5. FLUTICASONE PROPIONATE [Concomitant]

REACTIONS (4)
  - Allergic granulomatous angiitis [Unknown]
  - Vasculitis [Unknown]
  - Asthma [Unknown]
  - Rash [Unknown]
